FAERS Safety Report 6824659-4 (Version None)
Quarter: 2010Q3

REPORT INFORMATION
  Report Type: 
  Country: None (occurrence: None)
  Receive Date: 20100708
  Receipt Date: 20061110
  Transmission Date: 20110219
  Serious: No
  Sender: FDA-Public Use
  Company Number: US-PFIZER INC-2006140533

PATIENT
  Sex: Female

DRUGS (3)
  1. CHANTIX [Suspect]
  2. IRON [Suspect]
  3. ACETYLSALICYLIC ACID [Suspect]

REACTIONS (1)
  - VOMITING [None]
